FAERS Safety Report 17925144 (Version 1)
Quarter: 2020Q2

REPORT INFORMATION
  Report Type: Spontaneous
  Country: US (occurrence: US)
  Receive Date: 20200622
  Receipt Date: 20200622
  Transmission Date: 20200714
  Serious: Yes (Other)
  Sender: FDA-Public Use
  Company Number: US-FARMAPROD-202004-0449

PATIENT
  Age: 85 Year
  Sex: Female

DRUGS (3)
  1. SOOTHE [Concomitant]
     Active Substance: BISMUTH SUBSALICYLATE\GLYCERIN\PROPYLENE GLYCOL
     Indication: DRY EYE
     Route: 061
     Dates: start: 20191113
  2. OXERVATE [Suspect]
     Active Substance: CENEGERMIN-BKBJ
     Indication: NEUROTROPHIC KERATOPATHY
     Route: 047
     Dates: start: 20200324, end: 20200520
  3. DEXAMETHASONE. [Concomitant]
     Active Substance: DEXAMETHASONE
     Indication: DRY EYE
     Route: 061
     Dates: start: 20191113

REACTIONS (7)
  - Eye pain [Recovered/Resolved]
  - Erythema of eyelid [Recovered/Resolved with Sequelae]
  - Conjunctivitis bacterial [Recovered/Resolved]
  - Eye discharge [Recovered/Resolved]
  - Visual impairment [Recovered/Resolved]
  - Ocular hyperaemia [Recovered/Resolved]
  - Eyelid irritation [Recovered/Resolved]

NARRATIVE: CASE EVENT DATE: 20200422
